FAERS Safety Report 13297526 (Version 1)
Quarter: 2017Q1

REPORT INFORMATION
  Report Type: Spontaneous
  Country: US (occurrence: US)
  Receive Date: 20170305
  Receipt Date: 20170305
  Transmission Date: 20170428
  Serious: No
  Sender: FDA-Public Use
  Company Number: None

PATIENT
  Age: 60 Year
  Sex: Female
  Weight: 56.25 kg

DRUGS (5)
  1. GASTROGRAFIN [Suspect]
     Active Substance: DIATRIZOATE MEGLUMINE\DIATRIZOATE SODIUM
     Indication: COMPUTERISED TOMOGRAM
     Dates: start: 20170303, end: 20170304
  2. MEGESTROL [Concomitant]
     Active Substance: MEGESTROL
  3. ZANTAC [Concomitant]
     Active Substance: RANITIDINE HYDROCHLORIDE
  4. PREVACID [Concomitant]
     Active Substance: LANSOPRAZOLE
  5. DOXEPIN [Concomitant]
     Active Substance: DOXEPIN

REACTIONS (3)
  - Diarrhoea [None]
  - Nausea [None]
  - Irritable bowel syndrome [None]

NARRATIVE: CASE EVENT DATE: 20170303
